FAERS Safety Report 15953318 (Version 3)
Quarter: 2019Q1

REPORT INFORMATION
  Report Type: Spontaneous
  Country: HU (occurrence: HU)
  Receive Date: 20190212
  Receipt Date: 20190318
  Transmission Date: 20190417
  Serious: Yes (Hospitalization, Other)
  Sender: FDA-Public Use
  Company Number: PHHY2019HU031988

PATIENT
  Age: 60 Year
  Sex: Female
  Weight: 75 kg

DRUGS (4)
  1. EXEMESTANE. [Concomitant]
     Active Substance: EXEMESTANE
     Indication: PRODUCT USED FOR UNKNOWN INDICATION
     Dosage: UNK
     Route: 065
     Dates: start: 2018
  2. PERINDOPRIL [Suspect]
     Active Substance: PERINDOPRIL
     Indication: HYPERTENSION
     Dosage: 5 MG, QD
     Route: 048
  3. AFINITOR [Suspect]
     Active Substance: EVEROLIMUS
     Indication: BREAST CANCER
     Dosage: 10 MG, QD
     Route: 048
     Dates: start: 20180921
  4. COVEREX AS [Concomitant]
     Active Substance: PERINDOPRIL ARGININE
     Indication: PRODUCT USED FOR UNKNOWN INDICATION
     Dosage: UNK
     Route: 065
     Dates: start: 2010

REACTIONS (3)
  - Swollen tongue [Recovered/Resolved]
  - Breast cancer [Unknown]
  - Reaction to preservatives [Unknown]

NARRATIVE: CASE EVENT DATE: 20190205
